FAERS Safety Report 6822387-2 (Version None)
Quarter: 2010Q3

REPORT INFORMATION
  Report Type: 
  Country: None (occurrence: None)
  Receive Date: 20100708
  Receipt Date: 20100629
  Transmission Date: 20110219
  Serious: Yes (Other)
  Sender: FDA-Public Use
  Company Number: PHHY2010BR43142

PATIENT
  Age: 63 Year
  Sex: Female
  Weight: 56 kg

DRUGS (4)
  1. FORASEQ [Suspect]
     Indication: BRONCHIOLITIS
     Dosage: 1 DF, TID
  2. FORASEQ [Suspect]
     Dosage: INHALATION OF 1 CAPSULE OF EACH SUBSTANCE TWICE A DAY (IN THE MORNING AND AT NIGHT
  3. PREDNISONE [Concomitant]
     Indication: BRONCHIOLITIS
     Dosage: 20 MG
  4. PREDNISONE [Concomitant]
     Dosage: 1 TABLET TWICE A DAY (IN THE MORNING AND AT NIGHT

REACTIONS (2)
  - BRONCHIOLITIS [None]
  - DEVICE MALFUNCTION [None]
